FAERS Safety Report 8767182 (Version 1)
Quarter: 2012Q4

REPORT INFORMATION
  Report Type: 
  Country: US (occurrence: US)
  Receive Date: 20120904
  Receipt Date: 20120904
  Transmission Date: 20130627
  Serious: Yes (Hospitalization)
  Sender: FDA-Public Use
  Company Number: US-GLAXOSMITHKLINE-A0881350A

PATIENT
  Age: 75 Year
  Sex: Male

DRUGS (1)
  1. AVANDIA [Suspect]
     Indication: TYPE 2 DIABETES MELLITUS
     Dosage: 4MG Per day
     Route: 048
     Dates: start: 20060306, end: 20080806

REACTIONS (4)
  - Ischaemic stroke [Not Recovered/Not Resolved]
  - Myocardial ischaemia [Unknown]
  - Cerebrovascular accident [Unknown]
  - Ocular ischaemic syndrome [Unknown]
